FAERS Safety Report 26000582 (Version 2)
Quarter: 2025Q4

REPORT INFORMATION
  Report Type: Spontaneous
  Country: AU (occurrence: AU)
  Receive Date: 20251105
  Receipt Date: 20251114
  Transmission Date: 20260117
  Serious: Yes (Other)
  Sender: TEVA
  Company Number: AU-TEVA-VS-3388896

PATIENT
  Age: 14 Year
  Sex: Male

DRUGS (2)
  1. MELATONIN [Suspect]
     Active Substance: MELATONIN
     Indication: Insomnia
     Route: 065
  2. QUETIAPINE [Suspect]
     Active Substance: QUETIAPINE
     Indication: Generalised anxiety disorder
     Route: 065

REACTIONS (1)
  - Gastrointestinal disorder [Unknown]
